FAERS Safety Report 9159785 (Version 1)
Quarter: 2013Q1

REPORT INFORMATION
  Report Type: Spontaneous
  Country: DE (occurrence: DE)
  Receive Date: 20130313
  Receipt Date: 20130313
  Transmission Date: 20140127
  Serious: Yes (Hospitalization)
  Sender: FDA-Public Use
  Company Number: DE-NAPPMUNDI-DEU-2013-0010774

PATIENT
  Sex: Male

DRUGS (2)
  1. MSI MUNDIPHARMA [Suspect]
     Indication: PAIN
     Dosage: 200 MG, SEE TEXT
     Route: 065
  2. MSI MUNDIPHARMA [Suspect]
     Dosage: 20 MG, SEE TEXT
     Route: 065

REACTIONS (3)
  - Drug withdrawal syndrome [Unknown]
  - Pain [Unknown]
  - Drug ineffective [Unknown]
